FAERS Safety Report 16761230 (Version 1)
Quarter: 2019Q3

REPORT INFORMATION
  Report Type: Spontaneous
  Country: US (occurrence: US)
  Receive Date: 20190830
  Receipt Date: 20190830
  Transmission Date: 20191005
  Serious: No
  Sender: FDA-Public Use
  Company Number: US-ANIPHARMA-2019-US-010815

PATIENT
  Age: 54 Year
  Sex: Female
  Weight: 80.74 kg

DRUGS (3)
  1. ARIMIDEX [Suspect]
     Active Substance: ANASTROZOLE
     Indication: BREAST CANCER
     Dosage: 1 MG
     Route: 048
     Dates: start: 20180801
  2. B VITAMIN (NON-SPECIFIC) [Concomitant]
  3. OMEGA COMPLEX [Concomitant]

REACTIONS (3)
  - Musculoskeletal pain [Not Recovered/Not Resolved]
  - Off label use [Unknown]
  - Arthralgia [Not Recovered/Not Resolved]

NARRATIVE: CASE EVENT DATE: 201810
